FAERS Safety Report 24624872 (Version 1)
Quarter: 2024Q4

REPORT INFORMATION
  Report Type: Report from Study
  Country: US (occurrence: US)
  Receive Date: 20241115
  Receipt Date: 20241115
  Transmission Date: 20250114
  Serious: Yes (Death, Other)
  Sender: ULTRAGENYX PHARMACEUTICAL
  Company Number: US-ULTRAGENYX PHARMACEUTICAL INC.-US-UGX-24-02091

PATIENT
  Age: 31 Year
  Sex: Female

DRUGS (1)
  1. DOJOLVI [Suspect]
     Active Substance: TRIHEPTANOIN
     Indication: Long-chain acyl-coenzyme A dehydrogenase deficiency
     Dosage: 18 MILLILITER, QID
     Route: 048
     Dates: start: 2014

REACTIONS (3)
  - Death [Fatal]
  - Mobility decreased [Unknown]
  - Muscle disorder [Unknown]

NARRATIVE: CASE EVENT DATE: 20241020
